FAERS Safety Report 7435491-5 (Version None)
Quarter: 2011Q2

REPORT INFORMATION
  Report Type: 
  Country: None (occurrence: None)
  Receive Date: 20110425
  Receipt Date: 20110414
  Transmission Date: 20111010
  Serious: Yes (Hospitalization)
  Sender: FDA-Public Use
  Company Number: US-ASTRAZENECA-2011SE21515

PATIENT
  Age: 38 Year
  Sex: Female

DRUGS (8)
  1. SEROQUEL [Suspect]
     Indication: BIPOLAR DISORDER
     Dosage: 500 TO 700 MG DAILY
     Route: 048
  2. SEROQUEL [Suspect]
     Dosage: AT NIGHT
     Route: 048
  3. SEROQUEL [Suspect]
     Route: 048
  4. SEROQUEL [Suspect]
     Route: 048
  5. SEROQUEL [Suspect]
     Route: 048
  6. SEROQUEL [Suspect]
     Route: 048
  7. SEROQUEL [Suspect]
     Dosage: AT NIGHT
     Route: 048
  8. SEROQUEL [Suspect]
     Indication: AFFECTIVE DISORDER
     Dosage: 500 TO 700 MG DAILY
     Route: 048

REACTIONS (7)
  - SEDATION [None]
  - IRRITABILITY [None]
  - ABDOMINAL PAIN UPPER [None]
  - CONSTIPATION [None]
  - GASTRIC BYPASS [None]
  - GASTROINTESTINAL PAIN [None]
  - DRUG DOSE OMISSION [None]
